FAERS Safety Report 24211525 (Version 1)
Quarter: 2024Q3

REPORT INFORMATION
  Report Type: Spontaneous
  Country: US (occurrence: US)
  Receive Date: 20240814
  Receipt Date: 20240814
  Transmission Date: 20241017
  Serious: Yes (Life-Threatening)
  Sender: GE HEALTHCARE
  Company Number: US-GE HEALTHCARE-2024CSU009005

PATIENT
  Age: 84 Year
  Sex: Female

DRUGS (2)
  1. OMNIPAQUE [Suspect]
     Active Substance: IOHEXOL
     Indication: Computerised tomogram
     Dosage: UNK, TOTAL
     Route: 042
     Dates: start: 202404, end: 202404
  2. OMNIPAQUE [Suspect]
     Active Substance: IOHEXOL
     Indication: Brachytherapy

REACTIONS (1)
  - Blood pressure decreased [Recovered/Resolved]

NARRATIVE: CASE EVENT DATE: 20240401
